FAERS Safety Report 24982621 (Version 1)
Quarter: 2025Q1

REPORT INFORMATION
  Report Type: Spontaneous
  Country: GB (occurrence: GB)
  Receive Date: 20250218
  Receipt Date: 20250218
  Transmission Date: 20250409
  Serious: Yes (Other)
  Sender: ELI LILLY AND COMPANY
  Company Number: None

PATIENT
  Sex: Female

DRUGS (1)
  1. MOUNJARO [Suspect]
     Active Substance: TIRZEPATIDE
     Indication: Product used for unknown indication
     Route: 065

REACTIONS (8)
  - Chronic fatigue syndrome [Unknown]
  - Dissociation [Unknown]
  - Stress [Unknown]
  - Speech disorder [Recovered/Resolved]
  - Streptococcal infection [Unknown]
  - Infectious mononucleosis [Unknown]
  - Carpal tunnel syndrome [Unknown]
  - Vitamin B12 deficiency [Unknown]
